FAERS Safety Report 24184265 (Version 3)
Quarter: 2024Q3

REPORT INFORMATION
  Report Type: Spontaneous
  Country: BR (occurrence: BR)
  Receive Date: 20240807
  Receipt Date: 20240814
  Transmission Date: 20241016
  Serious: Yes (Disabling, Other)
  Sender: CELLTRION
  Company Number: BR-CELLTRION INC.-2024BR018558

PATIENT

DRUGS (6)
  1. INFLIXIMAB [Suspect]
     Active Substance: INFLIXIMAB
     Indication: Ankylosing spondylitis
     Dosage: 5 AMPOULES OF 100MG EACH (500MG) EVERY 8 WEEKS
     Route: 042
     Dates: start: 20221003
  2. OMEPRAZOLE [Concomitant]
     Active Substance: OMEPRAZOLE
     Indication: Gastrointestinal disorder
     Dosage: ONE TABLET PER DAY
     Route: 048
     Dates: start: 2009
  3. LOSARTAN [Concomitant]
     Active Substance: LOSARTAN\LOSARTAN POTASSIUM
     Indication: Hypertension
     Dosage: ONE TABLET PER DAY (START DATE: TWO YEARS AGO)
     Route: 048
  4. ATENOLOL [Concomitant]
     Active Substance: ATENOLOL
     Indication: Hypertension
     Dosage: ONE TABLET PER DAY (START DATE: TWO YEARS AGO)
     Route: 048
  5. REMICADE [Concomitant]
     Active Substance: INFLIXIMAB
  6. INFLIXIMAB [Concomitant]
     Active Substance: INFLIXIMAB

REACTIONS (5)
  - Influenza [Recovering/Resolving]
  - Immunodeficiency [Recovered/Resolved]
  - Back pain [Recovered/Resolved]
  - Cough [Not Recovered/Not Resolved]
  - Intentional dose omission [Recovered/Resolved]

NARRATIVE: CASE EVENT DATE: 20240715
